FAERS Safety Report 23100893 (Version 1)
Quarter: 2023Q4

REPORT INFORMATION
  Report Type: Spontaneous
  Country: US (occurrence: None)
  Receive Date: 20231021
  Receipt Date: 20231021
  Transmission Date: 20240109
  Serious: Yes (Hospitalization)
  Sender: FDA-Public Use
  Company Number: None

PATIENT
  Age: 77 Year
  Sex: Male
  Weight: 92 kg

DRUGS (2)
  1. DAPTOMYCIN [Suspect]
     Active Substance: DAPTOMYCIN
     Dosage: FREQUENCY : DAILY;?
     Route: 042
     Dates: start: 20230206, end: 20230313
  2. VANCOMYCIN [Suspect]
     Active Substance: VANCOMYCIN
     Dates: end: 20230313

REACTIONS (4)
  - Eosinophilic pneumonia [None]
  - Tubulointerstitial nephritis [None]
  - Myalgia [None]
  - Blood creatine phosphokinase increased [None]

NARRATIVE: CASE EVENT DATE: 20230313
